FAERS Safety Report 10725929 (Version 2)
Quarter: 2015Q4

REPORT INFORMATION
  Report Type: Spontaneous
  Country: JP (occurrence: JP)
  Receive Date: 20150121
  Receipt Date: 20151208
  Transmission Date: 20160304
  Serious: Yes (Other)
  Sender: FDA-Public Use
  Company Number: JP-CIPLA LTD.-2015JP00575

PATIENT

DRUGS (5)
  1. BENIDIPINE [Interacting]
     Active Substance: BENIDIPINE
     Dosage: 8 MG, QD
     Route: 065
  2. RISEDRONATE SODIUM. [Suspect]
     Active Substance: RISEDRONATE SODIUM
     Dosage: 17.5 MG, WEEKLY
     Route: 065
  3. DONEPEZIL. [Interacting]
     Active Substance: DONEPEZIL
     Indication: DEMENTIA ALZHEIMER^S TYPE
     Dosage: 5 MG, QD
     Route: 065
  4. ATORVASTATIN [Interacting]
     Active Substance: ATORVASTATIN
     Dosage: 10 MG, QD
     Route: 065
  5. ALFACALCIDOL [Suspect]
     Active Substance: ALFACALCIDOL
     Dosage: 0.5 MG, QD
     Route: 065

REACTIONS (2)
  - Electrocardiogram QT prolonged [Recovering/Resolving]
  - Drug interaction [Recovering/Resolving]
